FAERS Safety Report 10277241 (Version 3)
Quarter: 2014Q4

REPORT INFORMATION
  Report Type: Spontaneous
  Country: US (occurrence: US)
  Receive Date: 20140703
  Receipt Date: 20141112
  Transmission Date: 20150528
  Serious: Yes (Other)
  Sender: FDA-Public Use
  Company Number: US-PFIZER INC-2014179418

PATIENT
  Age: 30 Year
  Sex: Male

DRUGS (1)
  1. LYRICA [Suspect]
     Active Substance: PREGABALIN
     Dosage: 75 MG, 3X/DAY

REACTIONS (7)
  - Thinking abnormal [Unknown]
  - Pain in extremity [Unknown]
  - Depression [Unknown]
  - Abnormal dreams [Unknown]
  - Weight increased [Unknown]
  - Withdrawal syndrome [Unknown]
  - Suicidal ideation [Unknown]
